FAERS Safety Report 5002846-8 (Version None)
Quarter: 2006Q2

REPORT INFORMATION
  Report Type: 
  Country: None (occurrence: None)
  Receive Date: 20060512
  Receipt Date: 20060504
  Transmission Date: 20061013
  Serious: Yes (Hospitalization, Other)
  Sender: FDA-Public Use
  Company Number: 200611392BCC

PATIENT
  Age: 53 Year
  Sex: Male
  Weight: 87.0906 kg

DRUGS (4)
  1. BAYER CHILDRENS CHEWABLE ASPIRIN (ACETYLSALICYLIC ACID) [Suspect]
     Indication: CARDIAC DISORDER
     Dosage: 81 MG, ORAL
     Route: 048
     Dates: start: 20060325
  2. ENALAPRIL MALEATE [Concomitant]
  3. WELLBUTRIN SR [Concomitant]
  4. MECLIZINE [Concomitant]

REACTIONS (7)
  - CONDITION AGGRAVATED [None]
  - DIZZINESS [None]
  - HYPERTENSION [None]
  - NASOPHARYNGITIS [None]
  - VERTIGO [None]
  - VIRAL INFECTION [None]
  - VOMITING [None]
